FAERS Safety Report 5154543-6 (Version None)
Quarter: 2006Q4

REPORT INFORMATION
  Report Type: 
  Country: None (occurrence: None)
  Receive Date: 20061113
  Receipt Date: 20061002
  Transmission Date: 20070319
  Serious: Yes (Hospitalization)
  Sender: FDA-Public Use
  Company Number: ENTC2006-0295

PATIENT
  Age: 56 Year
  Sex: Female

DRUGS (4)
  1. STALEVO 100 [Suspect]
     Indication: PARKINSON'S DISEASE
     Dosage: 10 / 1 DAYS ORAL
     Route: 048
     Dates: start: 20060904, end: 20060908
  2. AMITRIPTYLINE HCL [Concomitant]
  3. LANSOPRAZOLE [Concomitant]
  4. SINEMET [Concomitant]

REACTIONS (1)
  - CONVULSION [None]
